FAERS Safety Report 10577349 (Version 4)
Quarter: 2014Q4

REPORT INFORMATION
  Report Type: Spontaneous
  Country: JP (occurrence: JP)
  Receive Date: 20141111
  Receipt Date: 20141201
  Transmission Date: 20150529
  Serious: Yes (Death)
  Sender: FDA-Public Use
  Company Number: JP-PFIZER INC-2014273915

PATIENT
  Age: 75 Year
  Sex: Male

DRUGS (4)
  1. CORTRIL [Suspect]
     Active Substance: HYDROCORTISONE
     Indication: ADRENAL INSUFFICIENCY
     Dosage: 30 MG, DAILY
     Dates: start: 20141002, end: 20141003
  2. CORTRIL [Suspect]
     Active Substance: HYDROCORTISONE
     Dosage: UNK
     Dates: start: 20141031, end: 20141113
  3. PREDNISOLONE. [Concomitant]
     Active Substance: PREDNISOLONE
     Indication: ADRENAL INSUFFICIENCY
     Route: 048
  4. CLEITON [Concomitant]
     Active Substance: HYDROCORTISONE SODIUM PHOSPHATE

REACTIONS (2)
  - Death [Fatal]
  - Staphylococcus test positive [Unknown]

NARRATIVE: CASE EVENT DATE: 20141010
